FAERS Safety Report 8517046-4 (Version None)
Quarter: 2012Q3

REPORT INFORMATION
  Report Type: 
  Country: None (occurrence: None)
  Receive Date: 20120706
  Receipt Date: 20120625
  Transmission Date: 20120928
  Serious: Yes (Life-Threatening, Other)
  Sender: FDA-Public Use
  Company Number: 2012P1045623

PATIENT
  Age: 85 Year
  Sex: Female

DRUGS (1)
  1. METOCLOPRAMIDE [Suspect]
     Indication: NAUSEA
     Dosage: ;X1; IV
     Route: 042

REACTIONS (4)
  - SOMNOLENCE [None]
  - METHAEMOGLOBINAEMIA [None]
  - ACUTE RESPIRATORY FAILURE [None]
  - TACHYCARDIA [None]
